FAERS Safety Report 7892600-1 (Version None)
Quarter: 2011Q4

REPORT INFORMATION
  Report Type: 
  Country: None (occurrence: None)
  Receive Date: 20111026
  Receipt Date: 20111012
  Transmission Date: 20120403
  Serious: Yes (Hospitalization)
  Sender: FDA-Public Use
  Company Number: 2011PROUSA00706

PATIENT
  Age: 52 Year
  Sex: Male
  Weight: 84 kg

DRUGS (1)
  1. PROVENGE [Suspect]
     Indication: PROSTATE CANCER METASTATIC
     Dosage: 250 ML, SINGLE, INTRAVENOUS
     Route: 042
     Dates: start: 20111007, end: 20111007

REACTIONS (6)
  - HYDRONEPHROSIS [None]
  - HYDROURETER [None]
  - URETERIC OBSTRUCTION [None]
  - LYMPHADENOPATHY [None]
  - PYREXIA [None]
  - CHILLS [None]
